FAERS Safety Report 7376661-4 (Version None)
Quarter: 2011Q1

REPORT INFORMATION
  Report Type: 
  Country: None (occurrence: None)
  Receive Date: 20110325
  Receipt Date: 20110321
  Transmission Date: 20110831
  Serious: Yes (Hospitalization)
  Sender: FDA-Public Use
  Company Number: FR-PFIZER INC-2011060999

PATIENT
  Age: 3 Year
  Sex: Female
  Weight: 13.696 kg

DRUGS (3)
  1. ZECLAR [Concomitant]
  2. ACETAMINOPHEN [Concomitant]
  3. CHILDREN'S ADVIL [Suspect]
     Indication: LUNG DISORDER
     Dosage: UNK
     Route: 048
     Dates: start: 20110109, end: 20110118

REACTIONS (3)
  - EMPYEMA [None]
  - PNEUMONIA PNEUMOCOCCAL [None]
  - INFECTION [None]
